FAERS Safety Report 7000522-3 (Version None)
Quarter: 2010Q3

REPORT INFORMATION
  Report Type: 
  Country: None (occurrence: None)
  Receive Date: 20100920
  Receipt Date: 20071211
  Transmission Date: 20110219
  Serious: No
  Sender: FDA-Public Use
  Company Number: US-ASTRAZENECA-2007UW13980

PATIENT
  Age: 15685 Day
  Sex: Female
  Weight: 74.8 kg

DRUGS (25)
  1. SEROQUEL [Suspect]
     Indication: BIPOLAR DISORDER
     Route: 048
     Dates: start: 20010101, end: 20050101
  2. SEROQUEL [Suspect]
     Indication: DEPRESSION
     Route: 048
     Dates: start: 20010101, end: 20050101
  3. SEROQUEL [Suspect]
     Dosage: 50-900 MG
     Route: 048
     Dates: start: 20021031, end: 20060401
  4. SEROQUEL [Suspect]
     Dosage: 50-900 MG
     Route: 048
     Dates: start: 20021031, end: 20060401
  5. SEROQUEL [Suspect]
     Route: 048
     Dates: start: 20050101, end: 20050101
  6. SEROQUEL [Suspect]
     Route: 048
     Dates: start: 20050101, end: 20050101
  7. SEROQUEL [Suspect]
     Route: 048
     Dates: start: 20060101, end: 20060101
  8. SEROQUEL [Suspect]
     Route: 048
     Dates: start: 20060101, end: 20060101
  9. SEROQUEL [Suspect]
     Route: 048
     Dates: end: 20050101
  10. SEROQUEL [Suspect]
     Route: 048
     Dates: end: 20050101
  11. RISPERDAL [Suspect]
     Dates: start: 20060601
  12. GEODON [Suspect]
     Indication: MANIA
     Dates: start: 20060101, end: 20060616
  13. GEODON [Suspect]
     Indication: MOOD SWINGS
     Dates: start: 20060101, end: 20060616
  14. ZYPREXA [Concomitant]
     Dates: start: 20050101, end: 20050101
  15. BUSPAR [Concomitant]
     Dosage: 15-45 MG DAILY
     Dates: start: 20060211
  16. KEPPRA [Concomitant]
     Indication: CONVULSION
     Dates: start: 20050701
  17. PREMARIN [Concomitant]
     Dates: start: 20050701
  18. VISTARIL [Concomitant]
     Indication: SLEEP DISORDER
     Dosage: 50-150 MG DAILY
     Dates: start: 20021031
  19. NEURONTIN [Concomitant]
     Indication: NERVOUSNESS
     Dates: start: 20060601
  20. ALBUTEROL [Concomitant]
     Dosage: 2 PUFFS TWICE DAILY
     Dates: start: 20050701
  21. ATENOLOL [Concomitant]
     Dates: start: 20060211
  22. PAXIL [Concomitant]
     Dates: start: 20060626
  23. LAMICTAL [Concomitant]
     Dosage: 25-50 MG DAILY
     Dates: start: 20050701
  24. GABITRIL [Concomitant]
     Dates: start: 20050701
  25. PROTONIX [Concomitant]
     Dates: start: 20050701

REACTIONS (3)
  - DIABETES MELLITUS [None]
  - METABOLIC SYNDROME [None]
  - SEDATION [None]
